FAERS Safety Report 9259671 (Version 4)
Quarter: 2013Q3

REPORT INFORMATION
  Report Type: Report from Study
  Country: DE (occurrence: DE)
  Receive Date: 20130429
  Receipt Date: 20130812
  Transmission Date: 20140515
  Serious: Yes (Hospitalization)
  Sender: FDA-Public Use
  Company Number: DE-BIOGENIDEC-2013BI037055

PATIENT
  Age: 43 Year
  Sex: Female
  Weight: 80 kg

DRUGS (2)
  1. BG00012 [Suspect]
     Indication: MULTIPLE SCLEROSIS
     Dates: start: 20101020
  2. DEPO-PROVERA [Concomitant]
     Indication: CONTRACEPTION
     Route: 030
     Dates: start: 1999

REACTIONS (1)
  - Multiple sclerosis [Recovered/Resolved]
